FAERS Safety Report 7809365-1 (Version None)
Quarter: 2011Q4

REPORT INFORMATION
  Report Type: 
  Country: None (occurrence: None)
  Receive Date: 20111012
  Receipt Date: 20110927
  Transmission Date: 20120403
  Serious: Yes (Other)
  Sender: FDA-Public Use
  Company Number: US-BAYER-2011-093100

PATIENT
  Age: 60 Year
  Sex: Male
  Weight: 91 kg

DRUGS (1)
  1. ASPIRIN [Suspect]
     Indication: ANALGESIC THERAPY
     Dosage: 1 OR 2 TABLETS, AS NEEDED
     Route: 048
     Dates: start: 20110701, end: 20110924

REACTIONS (3)
  - THROAT IRRITATION [None]
  - CHOKING [None]
  - FOREIGN BODY [None]
